FAERS Safety Report 6805301-5 (Version None)
Quarter: 2010Q2

REPORT INFORMATION
  Report Type: 
  Country: None (occurrence: None)
  Receive Date: 20100628
  Receipt Date: 20071020
  Transmission Date: 20101027
  Serious: No
  Sender: FDA-Public Use
  Company Number: US-PFIZER INC-2007088416

PATIENT
  Sex: Male
  Weight: 86.363 kg

DRUGS (2)
  1. GEODON [Suspect]
     Indication: DEPRESSION
     Dates: start: 20071019
  2. GEODON [Suspect]
     Indication: ANXIETY

REACTIONS (2)
  - MUSCULOSKELETAL STIFFNESS [None]
  - MYALGIA [None]
